FAERS Safety Report 25590346 (Version 1)
Quarter: 2025Q3

REPORT INFORMATION
  Report Type: Spontaneous
  Country: US (occurrence: US)
  Receive Date: 20250722
  Receipt Date: 20250722
  Transmission Date: 20251021
  Serious: No
  Sender: GALDERMA
  Company Number: US-GALDERMA-US2025011027

PATIENT

DRUGS (4)
  1. NEMLUVIO [Suspect]
     Active Substance: NEMOLIZUMAB-ILTO
     Indication: Neurodermatitis
     Route: 058
     Dates: start: 20250405, end: 20250405
  2. NEMLUVIO [Suspect]
     Active Substance: NEMOLIZUMAB-ILTO
     Route: 058
     Dates: start: 20250530, end: 20250530
  3. NEMLUVIO [Suspect]
     Active Substance: NEMOLIZUMAB-ILTO
     Route: 058
     Dates: start: 20250624, end: 20250624
  4. TACROLIMUS [Concomitant]
     Active Substance: TACROLIMUS
     Indication: Product used for unknown indication
     Route: 061

REACTIONS (2)
  - Product reconstitution quality issue [Recovered/Resolved]
  - Product dose omission issue [Recovered/Resolved]

NARRATIVE: CASE EVENT DATE: 20250405
